FAERS Safety Report 23032492 (Version 1)
Quarter: 2023Q4

REPORT INFORMATION
  Report Type: Spontaneous
  Country: US (occurrence: US)
  Receive Date: 20231005
  Receipt Date: 20231005
  Transmission Date: 20240110
  Serious: Yes (Other)
  Sender: FDA-Public Use
  Company Number: US-drreddys-SPO/USA/23/0178513

PATIENT
  Age: 26 Year
  Sex: Female

DRUGS (1)
  1. ZENATANE [Suspect]
     Active Substance: ISOTRETINOIN
     Indication: Acne
     Dosage: RMA ISSUE DATES: 16 JUNE 2023 03:06:35 PM, 21 JULY 2023 01:30:09 PM, 24 AUGUST 2023 01:22:01 PM

REACTIONS (1)
  - Mental disorder [Unknown]
